FAERS Safety Report 4742230-5 (Version None)
Quarter: 2005Q3

REPORT INFORMATION
  Report Type: 
  Country: None (occurrence: None)
  Receive Date: 20050811
  Receipt Date: 20050324
  Transmission Date: 20060218
  Serious: No
  Sender: FDA-Public Use
  Company Number: US-GLAXOSMITHKLINE-A0551147A

PATIENT
  Sex: Male

DRUGS (5)
  1. PAXIL CR [Suspect]
     Indication: OBSESSIVE-COMPULSIVE DISORDER
     Dosage: 75MG PER DAY
     Route: 048
  2. ZELNORM [Concomitant]
  3. NEXIUM [Concomitant]
  4. RHINOCORT [Concomitant]
  5. ZYRTEC [Concomitant]

REACTIONS (3)
  - ABNORMAL DREAMS [None]
  - EJACULATION DISORDER [None]
  - INSOMNIA [None]
